FAERS Safety Report 7638973-6 (Version None)
Quarter: 2011Q3

REPORT INFORMATION
  Report Type: 
  Country: None (occurrence: None)
  Receive Date: 20110727
  Receipt Date: 20110722
  Transmission Date: 20111222
  Serious: No
  Sender: FDA-Public Use
  Company Number: US-PFIZER INC-2011152402

PATIENT
  Sex: Female

DRUGS (3)
  1. PREMARIN [Suspect]
  2. PREMARIN [Suspect]
  3. PREMARIN [Suspect]
     Dosage: UNK
     Route: 067
     Dates: start: 20110101

REACTIONS (1)
  - SKIN LESION [None]
